FAERS Safety Report 15991451 (Version 1)
Quarter: 2019Q1

REPORT INFORMATION
  Report Type: Spontaneous
  Country: US (occurrence: US)
  Receive Date: 20190221
  Receipt Date: 20190221
  Transmission Date: 20190418
  Serious: No
  Sender: FDA-Public Use
  Company Number: US-BIOMARINAP-US-2019-122060

PATIENT
  Sex: Female
  Weight: 86.17 kg

DRUGS (1)
  1. KUVAN [Suspect]
     Active Substance: SAPROPTERIN DIHYDROCHLORIDE
     Indication: PHENYLKETONURIA
     Dosage: 1600 MILLIGRAM, QD
     Route: 048
     Dates: start: 201806

REACTIONS (4)
  - Cough [Recovering/Resolving]
  - Nasopharyngitis [Unknown]
  - Headache [Recovering/Resolving]
  - Sinus congestion [Unknown]
